FAERS Safety Report 8358428-3 (Version None)
Quarter: 2012Q2

REPORT INFORMATION
  Report Type: 
  Country: None (occurrence: None)
  Receive Date: 20120514
  Receipt Date: 20120503
  Transmission Date: 20120825
  Serious: Yes (Death, Hospitalization)
  Sender: FDA-Public Use
  Company Number: NL-CELGENEUS-114-21880-12032991

PATIENT
  Sex: Male

DRUGS (2)
  1. ALLOPURINOL [Concomitant]
     Indication: GOUT
     Route: 065
  2. REVLIMID [Suspect]
     Indication: MYELOFIBROSIS
     Dosage: 10 MILLIGRAM
     Route: 048
     Dates: start: 20040831, end: 20120113

REACTIONS (3)
  - MENINGOENCEPHALITIS HERPETIC [None]
  - CEREBRAL HAEMORRHAGE [None]
  - CEREBELLAR ISCHAEMIA [None]
